FAERS Safety Report 25288003 (Version 3)
Quarter: 2025Q3

REPORT INFORMATION
  Report Type: Spontaneous
  Country: US (occurrence: US)
  Receive Date: 20250509
  Receipt Date: 20250909
  Transmission Date: 20251021
  Serious: No
  Sender: BRISTOL-MYERS SQUIBB COMPANY
  Company Number: US-BRISTOL-MYERS SQUIBB COMPANY-2025-067664

PATIENT
  Age: 57 Year
  Sex: Female

DRUGS (2)
  1. ORENCIA [Suspect]
     Active Substance: ABATACEPT
     Indication: Rheumatoid arthritis
     Dates: start: 202403
  2. ORENCIA [Suspect]
     Active Substance: ABATACEPT
     Dates: start: 202403

REACTIONS (4)
  - Product use issue [Unknown]
  - Pain [Unknown]
  - Joint swelling [Unknown]
  - Arthralgia [Unknown]
